FAERS Safety Report 9654256 (Version 1)
Quarter: 2013Q4

REPORT INFORMATION
  Report Type: Spontaneous
  Country: ES (occurrence: ES)
  Receive Date: 20131029
  Receipt Date: 20131029
  Transmission Date: 20140711
  Serious: Yes (Other)
  Sender: FDA-Public Use
  Company Number: ES-B.I. PHARMACEUTICALS,INC./RIDGEFIELD-2013-BI-33891ES

PATIENT
  Age: 47 Year
  Sex: Female

DRUGS (6)
  1. TRAJENTA [Suspect]
     Dosage: 5 MG
     Route: 048
     Dates: start: 20130221, end: 20130228
  2. ACETYL SALICYLIC ACID [Concomitant]
     Dosage: 100 MG
     Route: 048
     Dates: start: 20110315
  3. CAPENON HCT 40MG/5MG/12.5MG [Concomitant]
     Dosage: FORMULATION: COATED TABLET, DOSE PER APPLICATION AND DAILY DOSE: 1 FIXED DOSE
     Route: 048
     Dates: start: 20111122
  4. METFORMIN KERN PHARMA 850 MG [Concomitant]
     Indication: DIABETES MELLITUS
     Dosage: 1275 MG
     Route: 048
     Dates: start: 20110315
  5. OMEPRAZOLE BEXAL [Concomitant]
     Dosage: 20 MG
     Route: 048
     Dates: start: 20110609
  6. SECALIP [Concomitant]
     Dosage: 145 MG
     Route: 048
     Dates: start: 20111027

REACTIONS (2)
  - Hypoglycaemia [Recovered/Resolved]
  - Rash [Recovered/Resolved]
